FAERS Safety Report 7061525-6 (Version None)
Quarter: 2010Q4

REPORT INFORMATION
  Report Type: 
  Country: None (occurrence: None)
  Receive Date: 20101026
  Receipt Date: 20101019
  Transmission Date: 20110411
  Serious: Yes (Death, Hospitalization, Other)
  Sender: FDA-Public Use
  Company Number: US-PFIZER INC-2010096130

PATIENT
  Sex: Female

DRUGS (1)
  1. GEODON [Suspect]
     Dosage: 80 MG, 2X/DAY
     Dates: start: 20010101, end: 20090101

REACTIONS (6)
  - DIABETIC COMA [None]
  - HYPERGLYCAEMIA [None]
  - OBESITY [None]
  - SEPTIC SHOCK [None]
  - TOXIC SHOCK SYNDROME [None]
  - TYPE 2 DIABETES MELLITUS [None]
